FAERS Safety Report 5081339-6 (Version None)
Quarter: 2006Q3

REPORT INFORMATION
  Report Type: 
  Country: None (occurrence: None)
  Receive Date: 20060810
  Receipt Date: 20060731
  Transmission Date: 20061208
  Serious: Yes (Other)
  Sender: FDA-Public Use
  Company Number: 228127

PATIENT
  Age: 48 Year
  Sex: Female

DRUGS (2)
  1. AVASTIN [Suspect]
     Indication: BREAST CANCER METASTATIC
     Dosage: 10 MG/KG
  2. ZOMETA [Concomitant]

REACTIONS (3)
  - EYE INJURY [None]
  - MECHANICAL COMPLICATION OF IMPLANT [None]
  - PAROPHTHALMIA [None]
